FAERS Safety Report 18845256 (Version 1)
Quarter: 2021Q1

REPORT INFORMATION
  Report Type: Spontaneous
  Country: CZ (occurrence: CZ)
  Receive Date: 20210203
  Receipt Date: 20210203
  Transmission Date: 20210419
  Serious: No
  Sender: FDA-Public Use
  Company Number: CZ-EXELIXIS-CABO-20028838

PATIENT
  Sex: Male

DRUGS (1)
  1. CABOMETYX [Suspect]
     Active Substance: CABOZANTINIB S-MALATE
     Indication: RENAL CANCER
     Dosage: UNK
     Dates: start: 20180628, end: 20181026

REACTIONS (3)
  - Malignant neoplasm progression [Unknown]
  - Toxicity to various agents [Unknown]
  - Diarrhoea [Unknown]
